FAERS Safety Report 11474522 (Version 1)
Quarter: 2015Q3

REPORT INFORMATION
  Report Type: Spontaneous
  Country: US (occurrence: None)
  Receive Date: 20150908
  Receipt Date: 20150908
  Transmission Date: 20151125
  Serious: No
  Sender: FDA-Public Use
  Company Number: None

PATIENT
  Age: 77 Year
  Sex: Male

DRUGS (2)
  1. HYQVIA [Suspect]
     Active Substance: HUMAN IMMUNOGLOBULIN G\HYALURONIDASE RECOMBINANT HUMAN
     Indication: HYPOGAMMAGLOBULINAEMIA
     Dosage: WK1
     Route: 058
     Dates: start: 20150707, end: 20150728
  2. HYQVIA [Suspect]
     Active Substance: HUMAN IMMUNOGLOBULIN G\HYALURONIDASE RECOMBINANT HUMAN
     Indication: HYPOGAMMAGLOBULINAEMIA
     Dosage: WK2
     Route: 058
     Dates: start: 20150707, end: 20150728

REACTIONS (7)
  - Insomnia [None]
  - Nausea [None]
  - Visceral pain [None]
  - Chest pain [None]
  - Influenza like illness [None]
  - Pain [None]
  - Headache [None]

NARRATIVE: CASE EVENT DATE: 20150728
